FAERS Safety Report 25176135 (Version 1)
Quarter: 2025Q2

REPORT INFORMATION
  Report Type: Spontaneous
  Country: US (occurrence: US)
  Receive Date: 20250409
  Receipt Date: 20250409
  Transmission Date: 20250717
  Serious: No
  Sender: INVENTIA HEALTHCARE
  Company Number: US-IHL-000660

PATIENT

DRUGS (1)
  1. TELMISARTAN [Suspect]
     Active Substance: TELMISARTAN
     Indication: Product used for unknown indication
     Route: 065

REACTIONS (3)
  - Product physical issue [Unknown]
  - Product with quality issue administered [Unknown]
  - No adverse event [Unknown]
